FAERS Safety Report 6220884-4 (Version None)
Quarter: 2009Q2

REPORT INFORMATION
  Report Type: 
  Country: None (occurrence: None)
  Receive Date: 20090604
  Receipt Date: 20090519
  Transmission Date: 20091009
  Serious: Yes (Other)
  Sender: FDA-Public Use
  Company Number: B0576210A

PATIENT
  Sex: 0

DRUGS (7)
  1. LAMIVUDINE [Suspect]
     Indication: HIV INFECTION
     Dosage: TRANSPLACENTARY
     Route: 064
  2. ZIDOVUDINE [Suspect]
     Dosage: TRANSPLACENTARY
     Route: 064
  3. ABACAVIR [Suspect]
     Dosage: TRANSPLACENTARY
     Route: 064
  4. TENOFOVIR DISOPROXIL FUMARATE [Suspect]
     Dosage: TRANSPLACENTARY
     Route: 064
  5. DARUNAVIR (FORMULATION UNKNOWN) (DARUNAVIR) [Suspect]
     Indication: HIV INFECTION
     Dosage: TRANSPLACENTARY
     Route: 064
  6. RITONAVIR [Suspect]
     Indication: HIV INFECTION
     Dosage: TRANSPLACENTARY
     Route: 064
  7. ETRAVIRINE (FORMULATION UNKNOWN) (ETRAVIRINE) [Suspect]
     Indication: HIV INFECTION
     Dosage: TRANSPLACENTARY
     Route: 064

REACTIONS (3)
  - ANAEMIA NEONATAL [None]
  - CAESAREAN SECTION [None]
  - MATERNAL DRUGS AFFECTING FOETUS [None]
